FAERS Safety Report 18617799 (Version 1)
Quarter: 2020Q4

REPORT INFORMATION
  Report Type: Spontaneous
  Country: FR (occurrence: FR)
  Receive Date: 20201215
  Receipt Date: 20201215
  Transmission Date: 20210114
  Serious: Yes (Hospitalization)
  Sender: FDA-Public Use
  Company Number: NVSC2020FR325721

PATIENT
  Age: 88 Year
  Sex: Male
  Weight: 56.4 kg

DRUGS (5)
  1. RISPERDAL [Suspect]
     Active Substance: RISPERIDONE
     Indication: PRODUCT USED FOR UNKNOWN INDICATION
     Dosage: UNK (NOR PRECISE)(LAST DOSE RECEIVED ON 15 OCT 2020)
     Route: 048
     Dates: start: 20201003
  2. AMOXICILLINE [Suspect]
     Active Substance: AMOXICILLIN
     Indication: ENDOCARDITIS
     Dosage: 10 G, QD
     Route: 042
     Dates: start: 20200925, end: 20201021
  3. ROCEPHINE [Suspect]
     Active Substance: CEFTRIAXONE SODIUM
     Indication: ENDOCARDITIS
     Dosage: UNK (LAST DOSE RECEIVED ON 21 OCT 2020)
     Route: 065
     Dates: start: 20200924
  4. SERESTA [Suspect]
     Active Substance: OXAZEPAM
     Indication: PRODUCT USED FOR UNKNOWN INDICATION
     Dosage: UNK (SI AGITATION) (LAST DOSE RECEIVED ON 14 OCT 2020)
     Route: 048
     Dates: start: 20201001
  5. MELATONINE [Suspect]
     Active Substance: MELATONIN
     Indication: PRODUCT USED FOR UNKNOWN INDICATION
     Dosage: UNK (NON PRECISE)
     Route: 048
     Dates: start: 20201007, end: 20201014

REACTIONS (1)
  - Neutropenia [Recovered/Resolved]

NARRATIVE: CASE EVENT DATE: 20201015
